FAERS Safety Report 14345024 (Version 1)
Quarter: 2018Q1

REPORT INFORMATION
  Report Type: Spontaneous
  Country: US (occurrence: US)
  Receive Date: 20180103
  Receipt Date: 20180103
  Transmission Date: 20180509
  Serious: Yes (Other)
  Sender: FDA-Public Use
  Company Number: US-ACCORD-062465

PATIENT
  Age: 73 Year
  Sex: Female

DRUGS (6)
  1. CALCIUM CARBONATE/COLECALCIFEROL [Concomitant]
     Dosage: CALCIUM 600 MG/VITAMIN D 200 IU
  2. GUAIFENESIN. [Concomitant]
     Active Substance: GUAIFENESIN
  3. PARACETAMOL [Concomitant]
     Active Substance: ACETAMINOPHEN
  4. CAPECITABINE. [Suspect]
     Active Substance: CAPECITABINE
     Indication: BREAST CANCER STAGE IV
     Dosage: CYCLICAL
  5. ZOLEDRONIC ACID. [Concomitant]
     Active Substance: ZOLEDRONIC ACID
     Indication: METASTASES TO BONE
     Dosage: EVERY 3 MONTHS
     Route: 042
  6. ONDANSETRON [Concomitant]
     Active Substance: ONDANSETRON

REACTIONS (2)
  - Lichenoid keratosis [Recovering/Resolving]
  - Photosensitivity reaction [Unknown]
